FAERS Safety Report 9624076 (Version 1)
Quarter: 2013Q4

REPORT INFORMATION
  Report Type: Spontaneous
  Country: US (occurrence: US)
  Receive Date: 20131015
  Receipt Date: 20131015
  Transmission Date: 20140711
  Serious: No
  Sender: FDA-Public Use
  Company Number: US-BAUSCH-BL-2013-001278

PATIENT
  Age: 64 Year
  Sex: Female

DRUGS (1)
  1. NEOMYCIN AND POLYMYXIN B SULFATES AND HYDROCORTISONE OTIC SUSPENSION U [Suspect]
     Dosage: 1-2 DROPS IN THE RIGHT EYE, ONE TIME
     Route: 047
     Dates: start: 20130221, end: 20130221

REACTIONS (4)
  - Wrong drug administered [Recovered/Resolved]
  - Incorrect route of drug administration [Recovered/Resolved]
  - Eye irritation [Not Recovered/Not Resolved]
  - Ocular hyperaemia [Not Recovered/Not Resolved]
